FAERS Safety Report 16572542 (Version 2)
Quarter: 2019Q4

REPORT INFORMATION
  Report Type: Spontaneous
  Country: ES (occurrence: ES)
  Receive Date: 20190715
  Receipt Date: 20191114
  Transmission Date: 20200122
  Serious: Yes (Other)
  Sender: FDA-Public Use
  Company Number: ES-MYLANLABS-2019M1064813

PATIENT
  Age: 72 Year
  Sex: Male

DRUGS (9)
  1. ORFIDAL [Concomitant]
     Active Substance: LORAZEPAM
     Indication: INSOMNIA
     Dosage: 1 MILLIGRAM, QD,  (0/0/1)
     Route: 048
  2. ADIRO [Concomitant]
     Active Substance: ASPIRIN
     Indication: PROPHYLAXIS
     Dosage: 1 MILLIGRAM, QD
     Route: 048
     Dates: start: 20170111
  3. OMEPRAZOL NORMON                   /00661201/ [Concomitant]
     Indication: PROPHYLAXIS
     Dosage: 20 MILLIGRAM, QD,
     Route: 048
     Dates: start: 20170111
  4. OLMESARTAN MEDOXOMIL. [Suspect]
     Active Substance: OLMESARTAN MEDOXOMIL
     Indication: HYPERTENSION
     Dosage: 1 DOSAGE FORM, QD (1/0/0)
     Route: 065
  5. ZYLORIC [Concomitant]
     Active Substance: ALLOPURINOL
     Indication: HYPERURICAEMIA
     Dosage: 1 DOSAGE FORM, QD (1/0/0)
     Route: 048
     Dates: start: 20170111
  6. EMCONCOR COR [Concomitant]
     Active Substance: BISOPROLOL
     Indication: HYPERTENSION
     Dosage: 2.5 MILLIGRAM, QD, (1/0/0)
     Route: 048
  7. CAPENON HCT [Concomitant]
     Active Substance: AMLODIPINE BESYLATE\HYDROCHLOROTHIAZIDE\OLMESARTAN MEDOXOMIL
     Indication: HYPERTENSION
     Dosage: 1 DOSAGE FORM, QD 1X/DAY (20 MG/5 MG/12,5 MG) 1/0/0
     Route: 065
     Dates: start: 20170111
  8. ROSUVASTATIN CALCIUM. [Interacting]
     Active Substance: ROSUVASTATIN CALCIUM
     Indication: HYPERCHOLESTEROLAEMIA
     Dosage: 1 DOSAGE FORM, QD, 1X/DAY (0/0/1)
     Route: 048
     Dates: start: 20170104, end: 20171020
  9. HCTZ [Concomitant]
     Active Substance: HYDROCHLOROTHIAZIDE
     Indication: HYPERTENSION
     Dosage: 1 DOSAGE FORM, QD (1/0/0)
     Route: 065

REACTIONS (2)
  - Tendon rupture [Recovered/Resolved]
  - Drug interaction [Recovered/Resolved]

NARRATIVE: CASE EVENT DATE: 2017
